FAERS Safety Report 5202309-0 (Version None)
Quarter: 2007Q1

REPORT INFORMATION
  Report Type: 
  Country: None (occurrence: None)
  Receive Date: 20070109
  Receipt Date: 20070102
  Transmission Date: 20070707
  Serious: Yes (Hospitalization, Other)
  Sender: FDA-Public Use
  Company Number: US-ELI_LILLY_AND_COMPANY-US200607002788

PATIENT
  Age: 72 Year
  Sex: Male
  Weight: 121.54 kg

DRUGS (8)
  1. HUMULIN N [Suspect]
     Indication: DIABETES MELLITUS
     Dosage: 26 U, EACH MORNING
     Dates: start: 19860101
  2. HUMULIN N [Suspect]
     Dosage: 8 U, EACH EVENING
     Dates: start: 19860101
  3. HUMULIN R [Suspect]
     Indication: DIABETES MELLITUS
     Dosage: 8 U, EACH MORNING
     Dates: start: 19860101
  4. HUMULIN R [Suspect]
     Dosage: 12 U, EACH EVENING
  5. HUMULIN R [Suspect]
     Dosage: 7 U, EACH EVENING
  6. LASIX [Concomitant]
  7. GLUCOPHAGE [Concomitant]
  8. TENORMIN                                /NEZ/ [Concomitant]
     Indication: HYPERTENSION

REACTIONS (23)
  - ANKLE FRACTURE [None]
  - BLOOD GLUCOSE DECREASED [None]
  - BLOOD GLUCOSE INCREASED [None]
  - BUNDLE BRANCH BLOCK LEFT [None]
  - CAROTID ARTERY OCCLUSION [None]
  - CATHETER RELATED COMPLICATION [None]
  - DIABETIC NEUROPATHY [None]
  - DIABETIC RETINOPATHY [None]
  - DIARRHOEA [None]
  - DYSPHAGIA [None]
  - GASTRITIS [None]
  - GASTRITIS HAEMORRHAGIC [None]
  - HYPERTENSION [None]
  - ISCHAEMIC STROKE [None]
  - LETHARGY [None]
  - NEUROPATHY PERIPHERAL [None]
  - PHARMACEUTICAL PRODUCT COMPLAINT [None]
  - PNEUMONIA [None]
  - RECTAL HAEMORRHAGE [None]
  - SINUS ARRHYTHMIA [None]
  - THROMBOCYTOPENIA [None]
  - URINARY TRACT INFECTION [None]
  - WEIGHT INCREASED [None]
